FAERS Safety Report 11270804 (Version 1)
Quarter: 2015Q3

REPORT INFORMATION
  Report Type: Other
  Country: US (occurrence: US)
  Receive Date: 20150714
  Receipt Date: 20150714
  Transmission Date: 20151125
  Serious: Yes (Hospitalization)
  Sender: FDA-Public Use
  Company Number: US-FRI-1000078099

PATIENT
  Sex: Female
  Weight: 115.7 kg

DRUGS (19)
  1. CLINDAMYCIN [Suspect]
     Active Substance: CLINDAMYCIN\CLINDAMYCIN PHOSPHATE
     Indication: ABSCESS
  2. DIGOXIN. [Concomitant]
     Active Substance: DIGOXIN
  3. NITROGLYCERIN. [Concomitant]
     Active Substance: NITROGLYCERIN
  4. SULFAMETHOXAZOLE AND TRIMETHOPRIM [Concomitant]
     Active Substance: SULFAMETHOXAZOLE\TRIMETHOPRIM
     Route: 048
  5. CEFTAROLINE FOSAMIL [Suspect]
     Active Substance: CEFTAROLINE FOSAMIL
     Indication: CELLULITIS
     Dosage: 1200 MG
     Route: 065
  6. ACETAMINOPHEN. [Concomitant]
     Active Substance: ACETAMINOPHEN
  7. SIMVASTATIN. [Concomitant]
     Active Substance: SIMVASTATIN
  8. TERBINAFINE. [Concomitant]
     Active Substance: TERBINAFINE
  9. CLINDAMYCIN [Suspect]
     Active Substance: CLINDAMYCIN\CLINDAMYCIN PHOSPHATE
     Indication: CELLULITIS
     Dosage: 2700 MG
     Route: 065
  10. CLINDAMYCIN [Suspect]
     Active Substance: CLINDAMYCIN\CLINDAMYCIN PHOSPHATE
     Indication: NECROTISING FASCIITIS
  11. INSULIN [Concomitant]
     Active Substance: INSULIN NOS
  12. ZOLPIDEM [Concomitant]
     Active Substance: ZOLPIDEM\ZOLPIDEM TARTRATE
  13. CLONIDINE. [Concomitant]
     Active Substance: CLONIDINE
  14. WARFARIN [Concomitant]
     Active Substance: WARFARIN
  15. CEFTAROLINE FOSAMIL [Suspect]
     Active Substance: CEFTAROLINE FOSAMIL
     Indication: NECROTISING FASCIITIS
  16. CEFTAROLINE FOSAMIL [Suspect]
     Active Substance: CEFTAROLINE FOSAMIL
     Indication: ABSCESS
  17. METOPROLOL [Concomitant]
     Active Substance: METOPROLOL
  18. ONDANSETRON [Concomitant]
     Active Substance: ONDANSETRON
  19. FUROSEMIDE. [Concomitant]
     Active Substance: FUROSEMIDE

REACTIONS (2)
  - Abdominal discomfort [Unknown]
  - Agranulocytosis [Recovered/Resolved]
